FAERS Safety Report 22317993 (Version 2)
Quarter: 2023Q2

REPORT INFORMATION
  Report Type: Spontaneous
  Country: PT (occurrence: PT)
  Receive Date: 20230515
  Receipt Date: 20230523
  Transmission Date: 20230722
  Serious: Yes (Life-Threatening, Other)
  Sender: FDA-Public Use
  Company Number: PT-ALKEM LABORATORIES LIMITED-PT-ALKEM-2023-05098

PATIENT
  Age: 4 Year
  Sex: Male

DRUGS (3)
  1. TACROLIMUS [Suspect]
     Active Substance: TACROLIMUS
     Indication: Immunosuppressant drug therapy
     Dosage: UNK
     Route: 065
  2. TACROLIMUS [Suspect]
     Active Substance: TACROLIMUS
     Dosage: UNK (RESUMED 8?MONTHS AFTER DIAGNOSIS)
     Route: 065
  3. METHYLPREDNISOLONE [Suspect]
     Active Substance: METHYLPREDNISOLONE
     Indication: Product used for unknown indication
     Dosage: 2 MILLIGRAM/KILOGRAM, QD (PER DAY)
     Route: 065

REACTIONS (5)
  - Kaposi^s sarcoma [Recovered/Resolved]
  - Acute respiratory distress syndrome [Recovering/Resolving]
  - Pneumonia cytomegaloviral [Recovering/Resolving]
  - Epstein-Barr viraemia [Recovered/Resolved]
  - Human herpesvirus 8 infection [Recovered/Resolved]
